FAERS Safety Report 11519000 (Version 1)
Quarter: 2015Q3

REPORT INFORMATION
  Report Type: Spontaneous
  Country: US (occurrence: US)
  Receive Date: 20150917
  Receipt Date: 20150917
  Transmission Date: 20151125
  Serious: Yes (Other)
  Sender: FDA-Public Use
  Company Number: US-TAKEDA-2015TUS003088

PATIENT

DRUGS (115)
  1. ACTOS [Suspect]
     Active Substance: PIOGLITAZONE HYDROCHLORIDE
     Dosage: 30 MG, UNK
     Route: 048
     Dates: start: 20120219
  2. METFORMIN [Concomitant]
     Active Substance: METFORMIN HYDROCHLORIDE
     Dosage: 500 MG, UNK
     Dates: start: 20050420
  3. METFORMIN [Concomitant]
     Active Substance: METFORMIN HYDROCHLORIDE
     Dosage: 500 MG, UNK
     Dates: start: 20050713
  4. METFORMIN [Concomitant]
     Active Substance: METFORMIN HYDROCHLORIDE
     Dosage: 500 MG, UNK
     Dates: start: 20051107
  5. METFORMIN [Concomitant]
     Active Substance: METFORMIN HYDROCHLORIDE
     Dosage: 500 MG, UNK
     Dates: start: 20061007
  6. METFORMIN [Concomitant]
     Active Substance: METFORMIN HYDROCHLORIDE
     Dosage: 500 MG, UNK
     Dates: start: 20090724
  7. AVANDIA [Concomitant]
     Active Substance: ROSIGLITAZONE MALEATE
     Dosage: UNK, STOPPED TAKING
  8. DIABETA                            /00145301/ [Concomitant]
     Dosage: 5 MG, UNK
     Dates: start: 20080521
  9. DIABETA                            /00145301/ [Concomitant]
     Dosage: 5 MG, UNK
     Dates: start: 20081216
  10. DIABETA                            /00145301/ [Concomitant]
     Dosage: 5 MG, UNK
     Dates: start: 20090512
  11. DIABETA                            /00145301/ [Concomitant]
     Dosage: 5 MG, UNK
     Dates: start: 20110414
  12. DIABETA                            /00145301/ [Concomitant]
     Dosage: 5 MG, UNK
     Dates: start: 20120124
  13. BYETTA [Concomitant]
     Active Substance: EXENATIDE
     Dosage: 10MCG/0.04ML, UNK
     Dates: start: 20070801
  14. BYETTA [Concomitant]
     Active Substance: EXENATIDE
     Dosage: 10MCG/0.04ML, UNK
     Dates: start: 20090305
  15. BYETTA [Concomitant]
     Active Substance: EXENATIDE
     Dosage: 10MCG/0.04ML, UNK
     Dates: start: 20090530
  16. METFORMIN [Concomitant]
     Active Substance: METFORMIN HYDROCHLORIDE
     Dosage: 500 MG, UNK
     Dates: start: 20050619
  17. METFORMIN [Concomitant]
     Active Substance: METFORMIN HYDROCHLORIDE
     Dosage: 500 MG, UNK
     Dates: start: 20080728
  18. METFORMIN [Concomitant]
     Active Substance: METFORMIN HYDROCHLORIDE
     Dosage: 500 MG, UNK
     Dates: start: 20081203
  19. METFORMIN [Concomitant]
     Active Substance: METFORMIN HYDROCHLORIDE
     Dosage: 500 MG, UNK
     Dates: start: 20090428
  20. DIABETA                            /00145301/ [Concomitant]
     Dosage: 5 MG, UNK
     Dates: start: 20060717
  21. DIABETA                            /00145301/ [Concomitant]
     Dosage: 5 MG, UNK
     Dates: start: 20060814
  22. DIABETA                            /00145301/ [Concomitant]
     Dosage: 5 MG, UNK
     Dates: start: 20070326
  23. DIABETA                            /00145301/ [Concomitant]
     Dosage: 5 MG, UNK
     Dates: start: 20090206
  24. DIABETA                            /00145301/ [Concomitant]
     Dosage: UNK
     Dates: start: 20130107
  25. BYETTA [Concomitant]
     Active Substance: EXENATIDE
     Dosage: 10MCG/0.04ML, UNK
     Dates: start: 20080321
  26. BYETTA [Concomitant]
     Active Substance: EXENATIDE
     Dosage: 10MCG/0.04ML, UNK
     Dates: start: 20090820
  27. ACTOS [Suspect]
     Active Substance: PIOGLITAZONE HYDROCHLORIDE
     Dosage: 15 MG, UNK
     Route: 048
     Dates: start: 20060201
  28. ACTOS [Suspect]
     Active Substance: PIOGLITAZONE HYDROCHLORIDE
     Dosage: 30 MG, UNK
     Route: 048
     Dates: start: 20091226
  29. METFORMIN [Concomitant]
     Active Substance: METFORMIN HYDROCHLORIDE
     Dosage: 500 MG, UNK
     Dates: start: 20050324
  30. METFORMIN [Concomitant]
     Active Substance: METFORMIN HYDROCHLORIDE
     Dosage: 500 MG, UNK
     Dates: start: 20060102
  31. METFORMIN [Concomitant]
     Active Substance: METFORMIN HYDROCHLORIDE
     Dosage: 500 MG, UNK
     Dates: start: 20090206
  32. AVANDIA [Concomitant]
     Active Substance: ROSIGLITAZONE MALEATE
     Dosage: 8 MG, UNK
     Dates: start: 20050104
  33. AVANDIA [Concomitant]
     Active Substance: ROSIGLITAZONE MALEATE
     Dosage: 8 MG, UNK
     Dates: start: 20050131
  34. DIABETA                            /00145301/ [Concomitant]
     Dosage: 5 MG, UNK, BEGAN IN THE LATE 1990^S
     Dates: end: 20050131
  35. DIABETA                            /00145301/ [Concomitant]
     Dosage: 5 MG, UNK
     Dates: start: 20061104
  36. DIABETA                            /00145301/ [Concomitant]
     Dosage: 5 MG, UNK
     Dates: start: 20111015
  37. DIABETA                            /00145301/ [Concomitant]
     Dosage: 5 MG, UNK
     Dates: start: 20120511
  38. BYETTA [Concomitant]
     Active Substance: EXENATIDE
     Dosage: 10MCG/0.04ML, UNK
     Dates: start: 20070502
  39. BYETTA [Concomitant]
     Active Substance: EXENATIDE
     Dosage: 10MCG/0.04ML, UNK
     Dates: start: 20080422
  40. BYETTA [Concomitant]
     Active Substance: EXENATIDE
     Dosage: 10MCG/0.04ML, UNK
     Dates: start: 20091226
  41. BYETTA [Concomitant]
     Active Substance: EXENATIDE
     Dosage: 10MCG/0.04ML, UNK
     Dates: start: 20101011
  42. ACTOS [Suspect]
     Active Substance: PIOGLITAZONE HYDROCHLORIDE
     Dosage: 45 MG, UNK
     Route: 048
     Dates: start: 20091024
  43. METFORMIN [Concomitant]
     Active Substance: METFORMIN HYDROCHLORIDE
     Dosage: 500 MG, UNK
     Dates: start: 20061104
  44. METFORMIN [Concomitant]
     Active Substance: METFORMIN HYDROCHLORIDE
     Dosage: 500 MG, UNK
     Dates: start: 20070326
  45. METFORMIN [Concomitant]
     Active Substance: METFORMIN HYDROCHLORIDE
     Dosage: 500 MG, UNK
     Dates: start: 20070714
  46. METFORMIN [Concomitant]
     Active Substance: METFORMIN HYDROCHLORIDE
     Dosage: 500 MG, UNK
     Dates: start: 20071009
  47. METFORMIN [Concomitant]
     Active Substance: METFORMIN HYDROCHLORIDE
     Dosage: 500 MG, UNK
     Dates: start: 20110806
  48. METFORMIN [Concomitant]
     Active Substance: METFORMIN HYDROCHLORIDE
     Dosage: 500 MG, UNK
     Dates: start: 20120219
  49. AVANDIA [Concomitant]
     Active Substance: ROSIGLITAZONE MALEATE
     Dosage: 8 MG, UNK
     Dates: start: 20050223
  50. AVANDIA [Concomitant]
     Active Substance: ROSIGLITAZONE MALEATE
     Dosage: 8 MG, UNK
     Dates: start: 20050619
  51. AVANDIA [Concomitant]
     Active Substance: ROSIGLITAZONE MALEATE
     Dosage: 8 MG, UNK
     Dates: start: 20050716
  52. DIABETA                            /00145301/ [Concomitant]
     Dosage: 5 MG, UNK
     Dates: start: 20050519
  53. DIABETA                            /00145301/ [Concomitant]
     Dosage: 5 MG, UNK
     Dates: start: 20060609
  54. DIABETA                            /00145301/ [Concomitant]
     Dosage: 5 MG, UNK
     Dates: start: 20100401
  55. BYETTA [Concomitant]
     Active Substance: EXENATIDE
     Dosage: 10MCG/0.04ML, UNK
     Dates: start: 20070927
  56. BYETTA [Concomitant]
     Active Substance: EXENATIDE
     Dosage: 10MCG/0.04ML, UNK
     Dates: start: 20081216
  57. BYETTA [Concomitant]
     Active Substance: EXENATIDE
     Dosage: 10MCG/0.04ML, UNK
     Dates: start: 20091228
  58. BYETTA [Concomitant]
     Active Substance: EXENATIDE
     Dosage: 10MCG/0.04ML, UNK
     Dates: start: 20110315
  59. BYETTA [Concomitant]
     Active Substance: EXENATIDE
     Dosage: 10MCG/0.04ML, UNK
     Dates: start: 20120611
  60. METFORMIN [Concomitant]
     Active Substance: METFORMIN HYDROCHLORIDE
     Dosage: 500 MG, UNK, SINCE THE 1990^S
     Dates: end: 20050131
  61. METFORMIN [Concomitant]
     Active Substance: METFORMIN HYDROCHLORIDE
     Dosage: 500 MG, UNK
     Dates: start: 20060505
  62. METFORMIN [Concomitant]
     Active Substance: METFORMIN HYDROCHLORIDE
     Dosage: 500 MG, UNK
     Dates: start: 20111101
  63. AVANDIA [Concomitant]
     Active Substance: ROSIGLITAZONE MALEATE
     Dosage: 8 MG, UNK
     Dates: start: 20050519
  64. DIABETA                            /00145301/ [Concomitant]
     Dosage: 5 MG, UNK
     Dates: start: 20060505
  65. DIABETA                            /00145301/ [Concomitant]
     Dosage: 5 MG, UNK
     Dates: start: 20070714
  66. DIABETA                            /00145301/ [Concomitant]
     Dosage: 5 MG, UNK
     Dates: start: 20091226
  67. DIABETA                            /00145301/ [Concomitant]
     Dosage: 5 MG, UNK
     Dates: start: 20120904
  68. BYETTA [Concomitant]
     Active Substance: EXENATIDE
     Dosage: 10MCG/0.04ML, UNK
     Dates: start: 20070703
  69. BYETTA [Concomitant]
     Active Substance: EXENATIDE
     Dosage: 10MCG/0.04ML, UNK
     Dates: start: 20070830
  70. BYETTA [Concomitant]
     Active Substance: EXENATIDE
     Dosage: 10MCG/0.04ML, UNK
     Dates: start: 20080118
  71. BYETTA [Concomitant]
     Active Substance: EXENATIDE
     Dosage: 10MCG/0.04ML, UNK
     Dates: start: 20080621
  72. ACTOS [Suspect]
     Active Substance: PIOGLITAZONE HYDROCHLORIDE
     Indication: TYPE 2 DIABETES MELLITUS
     Dosage: 30 MG, UNK
     Route: 048
     Dates: start: 20050907
  73. ACTOS [Suspect]
     Active Substance: PIOGLITAZONE HYDROCHLORIDE
     Dosage: 15 MG, UNK
     Route: 048
     Dates: start: 20070830
  74. METFORMIN [Concomitant]
     Active Substance: METFORMIN HYDROCHLORIDE
     Dosage: 500 MG, UNK
     Dates: start: 20080105
  75. METFORMIN [Concomitant]
     Active Substance: METFORMIN HYDROCHLORIDE
     Dosage: 500 MG, UNK
     Dates: start: 20110115
  76. METFORMIN [Concomitant]
     Active Substance: METFORMIN HYDROCHLORIDE
     Dosage: 500 MG, UNK
     Dates: start: 20120531
  77. DIABETA                            /00145301/ [Concomitant]
     Dosage: 5 MG, UNK
     Dates: start: 20050324
  78. DIABETA                            /00145301/ [Concomitant]
     Dosage: 5 MG, UNK
     Dates: start: 20060102
  79. DIABETA                            /00145301/ [Concomitant]
     Dosage: 5 MG, UNK
     Dates: start: 20110704
  80. BYETTA [Concomitant]
     Active Substance: EXENATIDE
     Dosage: 10MCG/0.04ML, UNK
     Dates: start: 20070404
  81. BYETTA [Concomitant]
     Active Substance: EXENATIDE
     Dosage: 10MCG/0.04ML, UNK
     Dates: start: 20070604
  82. BYETTA [Concomitant]
     Active Substance: EXENATIDE
     Dosage: 10MCG/0.04ML, UNK
     Dates: start: 20071221
  83. BYETTA [Concomitant]
     Active Substance: EXENATIDE
     Dosage: 10MCG/0.04ML, UNK
     Dates: start: 20080222
  84. BYETTA [Concomitant]
     Active Substance: EXENATIDE
     Dosage: 10MCG/0.04ML, UNK
     Dates: start: 20101112
  85. ACTOS [Suspect]
     Active Substance: PIOGLITAZONE HYDROCHLORIDE
     Dosage: 30 MG, UNK
     Route: 048
     Dates: start: 20061107
  86. METFORMIN [Concomitant]
     Active Substance: METFORMIN HYDROCHLORIDE
     Dosage: 500 MG, UNK
     Dates: start: 20060914
  87. METFORMIN [Concomitant]
     Active Substance: METFORMIN HYDROCHLORIDE
     Dosage: 500 MG, UNK
     Dates: start: 20080521
  88. METFORMIN [Concomitant]
     Active Substance: METFORMIN HYDROCHLORIDE
     Dosage: 500 MG, UNK
     Dates: start: 20091230
  89. METFORMIN [Concomitant]
     Active Substance: METFORMIN HYDROCHLORIDE
     Dosage: 500 MG, UNK
     Dates: start: 20100615
  90. METFORMIN [Concomitant]
     Active Substance: METFORMIN HYDROCHLORIDE
     Dosage: 500 MG, UNK
     Dates: start: 20101112
  91. METFORMIN [Concomitant]
     Active Substance: METFORMIN HYDROCHLORIDE
     Dosage: 400 MG, UNK
     Dates: start: 20121018
  92. DIABETA                            /00145301/ [Concomitant]
     Dosage: 5 MG, UNK
     Dates: start: 20050713
  93. DIABETA                            /00145301/ [Concomitant]
     Dosage: 5 MG, UNK
     Dates: start: 20060914
  94. DIABETA                            /00145301/ [Concomitant]
     Dosage: 5 MG, UNK
     Dates: start: 20061007
  95. DIABETA                            /00145301/ [Concomitant]
     Dosage: 5 MG, UNK
     Dates: start: 20071009
  96. DIABETA                            /00145301/ [Concomitant]
     Dosage: 5 MG, UNK
     Dates: start: 20080728
  97. BYETTA [Concomitant]
     Active Substance: EXENATIDE
     Dosage: 10MCG/0.04ML, UNK
     Dates: start: 20080523
  98. BYETTA [Concomitant]
     Active Substance: EXENATIDE
     Dosage: 10MCG/0.04ML, UNK
     Dates: start: 20080805
  99. BYETTA [Concomitant]
     Active Substance: EXENATIDE
     Dosage: 10MCG/0.04ML, UNK
     Dates: start: 20101012
  100. BYETTA [Concomitant]
     Active Substance: EXENATIDE
     Dosage: UNK, STOPPED TAKING
  101. METFORMIN [Concomitant]
     Active Substance: METFORMIN HYDROCHLORIDE
     Dosage: 500 MG, UNK
     Dates: start: 20060305
  102. METFORMIN [Concomitant]
     Active Substance: METFORMIN HYDROCHLORIDE
     Dosage: 500 MG, UNK
     Dates: start: 20060609
  103. METFORMIN [Concomitant]
     Active Substance: METFORMIN HYDROCHLORIDE
     Dosage: 500 MG, UNK
     Dates: start: 20060717
  104. METFORMIN [Concomitant]
     Active Substance: METFORMIN HYDROCHLORIDE
     Dosage: 500 MG, UNK
     Dates: start: 20060814
  105. AVANDIA [Concomitant]
     Active Substance: ROSIGLITAZONE MALEATE
     Dosage: 8 MG, UNK
     Dates: start: 20050324
  106. AVANDIA [Concomitant]
     Active Substance: ROSIGLITAZONE MALEATE
     Dosage: 8 MG, UNK
     Dates: start: 20050420
  107. DIABETA                            /00145301/ [Concomitant]
     Dosage: 5 MG, UNK
     Dates: start: 20050420
  108. DIABETA                            /00145301/ [Concomitant]
     Dosage: 5 MG, UNK
     Dates: start: 20050619
  109. DIABETA                            /00145301/ [Concomitant]
     Dosage: 5 MG, UNK
     Dates: start: 20051107
  110. DIABETA                            /00145301/ [Concomitant]
     Dosage: 5 MG, UNK
     Dates: start: 20060305
  111. DIABETA                            /00145301/ [Concomitant]
     Dosage: 5 MG, UNK
     Dates: start: 20080105
  112. DIABETA                            /00145301/ [Concomitant]
     Dosage: 5 MG, UNK
     Dates: start: 20090718
  113. DIABETA                            /00145301/ [Concomitant]
     Dosage: 5 MG, UNK
     Dates: start: 20101112
  114. BYETTA [Concomitant]
     Active Substance: EXENATIDE
     Dosage: 10MCG/0.04ML, UNK
     Dates: start: 20071027
  115. BYETTA [Concomitant]
     Active Substance: EXENATIDE
     Dosage: 10MCG/0.04ML, UNK
     Dates: start: 20071124

REACTIONS (4)
  - Coordination abnormal [Unknown]
  - Dizziness [Unknown]
  - Bladder cancer [Unknown]
  - Haematochezia [Not Recovered/Not Resolved]

NARRATIVE: CASE EVENT DATE: 20120917
